FAERS Safety Report 23153717 (Version 1)
Quarter: 2023Q4

REPORT INFORMATION
  Report Type: Report from Study
  Country: US (occurrence: US)
  Receive Date: 20231107
  Receipt Date: 20231107
  Transmission Date: 20240109
  Serious: Yes (Hospitalization, Other)
  Sender: FDA-Public Use
  Company Number: US-ABBVIE-5483528

PATIENT
  Sex: Female

DRUGS (1)
  1. SKYRIZI [Suspect]
     Active Substance: RISANKIZUMAB-RZAA
     Indication: Psoriasis
     Dosage: END DATE: 2023
     Route: 058
     Dates: start: 20230717

REACTIONS (7)
  - Chest pain [Recovered/Resolved]
  - Diarrhoea [Not Recovered/Not Resolved]
  - Ostomy bag placement [Unknown]
  - Cough [Unknown]
  - Asthenia [Not Recovered/Not Resolved]
  - Chest discomfort [Recovered/Resolved]
  - Dyspnoea [Unknown]

NARRATIVE: CASE EVENT DATE: 20230101
